FAERS Safety Report 23544451 (Version 1)
Quarter: 2024Q1

REPORT INFORMATION
  Report Type: Spontaneous
  Country: US (occurrence: None)
  Receive Date: 20240217
  Receipt Date: 20240217
  Transmission Date: 20240410
  Serious: Yes (unspecified)
  Sender: FDA-Public Use
  Company Number: None

PATIENT
  Sex: 0

DRUGS (1)
  1. XCOPRI [Suspect]
     Active Substance: CENOBAMATE
     Indication: Epilepsy
     Dosage: FREQUENCY : AT BEDTIME;?
     Route: 048

REACTIONS (6)
  - Behaviour disorder [None]
  - Cognitive disorder [None]
  - Obsessive-compulsive disorder [None]
  - Hallucination [None]
  - Insomnia [None]
  - Sleep disorder [None]

NARRATIVE: CASE EVENT DATE: 20240212
